FAERS Safety Report 26071594 (Version 1)
Quarter: 2025Q4

REPORT INFORMATION
  Report Type: Spontaneous
  Country: TW (occurrence: TW)
  Receive Date: 20251120
  Receipt Date: 20251120
  Transmission Date: 20260117
  Serious: Yes (Hospitalization)
  Sender: IPSEN BIOPHARMACEUTICALS, INC.
  Company Number: TW-IPSEN Group, Research and Development-2025-26873

PATIENT
  Age: 60 Year
  Sex: Female
  Weight: 82.5 kg

DRUGS (16)
  1. ONIVYDE [Suspect]
     Active Substance: IRINOTECAN HYDROCHLORIDE
     Indication: Pancreatic carcinoma metastatic
     Dosage: 3 VIAL
     Route: 041
  2. ONIVYDE [Suspect]
     Active Substance: IRINOTECAN HYDROCHLORIDE
     Indication: Disease progression
     Dosage: 70MG/M2, Q2W
     Route: 042
     Dates: start: 20251014
  3. ONIVYDE [Suspect]
     Active Substance: IRINOTECAN HYDROCHLORIDE
     Route: 042
     Dates: start: 20251014, end: 20251014
  4. LEUCOVORIN [Suspect]
     Active Substance: LEUCOVORIN\LEUCOVORIN CALCIUM
     Indication: Pancreatic carcinoma metastatic
  5. LEUCOVORIN [Suspect]
     Active Substance: LEUCOVORIN\LEUCOVORIN CALCIUM
     Indication: Disease progression
  6. FLUOROURACIL [Suspect]
     Active Substance: FLUOROURACIL
     Indication: Pancreatic carcinoma metastatic
  7. FLUOROURACIL [Suspect]
     Active Substance: FLUOROURACIL
     Indication: Disease progression
  8. DEXAMETHASONE [Concomitant]
     Active Substance: DEXAMETHASONE
  9. Vena (Diphenhydramine) [Concomitant]
  10. ALOXI [Concomitant]
     Active Substance: PALONOSETRON HYDROCHLORIDE
  11. BARACLUDE [Concomitant]
     Active Substance: ENTECAVIR
     Dosage: 1 TAB
  12. Eurodin [Concomitant]
     Dosage: 1 TAB HS
  13. ALINAMIN F [Concomitant]
     Active Substance: FURSULTIAMINE HYDROCHLORIDE
     Dosage: 1TAB TID
  14. RABEPRAZOLE SODIUM [Concomitant]
     Active Substance: RABEPRAZOLE SODIUM
     Dosage: 1TAB QD
  15. Utraphen [Concomitant]
     Dosage: 1TAB HS
  16. TRAZODONE HYDROCHLORIDE [Concomitant]
     Active Substance: TRAZODONE HYDROCHLORIDE
     Dosage: 1TAB HS

REACTIONS (5)
  - Chest discomfort [Recovered/Resolved]
  - Rash [Recovered/Resolved]
  - Rash [Recovered/Resolved]
  - Dyspnoea [Recovered/Resolved]
  - Insomnia [Unknown]

NARRATIVE: CASE EVENT DATE: 20251014
